FAERS Safety Report 18529420 (Version 1)
Quarter: 2020Q4

REPORT INFORMATION
  Report Type: Report from Study
  Country: US (occurrence: US)
  Receive Date: 20201120
  Receipt Date: 20201120
  Transmission Date: 20210114
  Serious: Yes (Hospitalization)
  Sender: FDA-Public Use
  Company Number: US-TAKEDA-2020TUS049097

PATIENT
  Age: 50 Year
  Sex: Male

DRUGS (9)
  1. AUGMENTINE [AMOXICILLIN TRIHYDRATE;CLAVULANATE POTASSIUM] [Concomitant]
     Active Substance: AMOXICILLIN\CLAVULANATE POTASSIUM
     Indication: PRODUCT USED FOR UNKNOWN INDICATION
     Dosage: 875 MILLIGRAM, QD
     Route: 048
     Dates: start: 20181115
  2. TEDUGLUTIDE [Suspect]
     Active Substance: TEDUGLUTIDE
     Indication: SHORT-BOWEL SYNDROME
     Dosage: 5.0 MILLIGRAM (DAILY DOSE 0.05 MG/KG, TED DOSES PER WEEK 7)
     Route: 065
     Dates: start: 20190328
  3. DICYCLOMINE [DICYCLOVERINE HYDROCHLORIDE] [Concomitant]
     Active Substance: DICYCLOMINE HYDROCHLORIDE
     Indication: PRODUCT USED FOR UNKNOWN INDICATION
     Dosage: 10 MILLIGRAM
     Route: 048
  4. TEDUGLUTIDE [Suspect]
     Active Substance: TEDUGLUTIDE
     Indication: SHORT-BOWEL SYNDROME
     Dosage: 5.0 MILLIGRAM (DAILY DOSE 0.05 MG/KG, TED DOSES PER WEEK 7)
     Route: 065
     Dates: start: 20190328
  5. TEDUGLUTIDE [Suspect]
     Active Substance: TEDUGLUTIDE
     Indication: SHORT-BOWEL SYNDROME
     Dosage: 5.0 MILLIGRAM (DAILY DOSE 0.05 MG/KG, TED DOSES PER WEEK 7)
     Route: 065
     Dates: start: 20190328
  6. CIPRO [Concomitant]
     Active Substance: CIPROFLOXACIN HYDROCHLORIDE
     Indication: PRODUCT USED FOR UNKNOWN INDICATION
     Dosage: 500 MILLIGRAM, BID
     Route: 048
     Dates: start: 20181115, end: 20181125
  7. TEDUGLUTIDE [Suspect]
     Active Substance: TEDUGLUTIDE
     Indication: SHORT-BOWEL SYNDROME
     Dosage: 5.0 MILLIGRAM (DAILY DOSE 0.05 MG/KG, TED DOSES PER WEEK 7)
     Route: 065
     Dates: start: 20190328
  8. ADAPT [Concomitant]
     Indication: ORAL FUNGAL INFECTION
     Dosage: UNK
     Route: 061
     Dates: start: 20181108, end: 20181208
  9. CIPRO [Concomitant]
     Active Substance: CIPROFLOXACIN HYDROCHLORIDE
     Dosage: 5.0 UNK
     Route: 065
     Dates: start: 20190328

REACTIONS (3)
  - Hernia repair [Recovered/Resolved]
  - Abdominal pain [Not Recovered/Not Resolved]
  - Dehydration [Not Recovered/Not Resolved]

NARRATIVE: CASE EVENT DATE: 20190423
